FAERS Safety Report 7026836-9 (Version None)
Quarter: 2010Q4

REPORT INFORMATION
  Report Type: 
  Country: None (occurrence: None)
  Receive Date: 20101004
  Receipt Date: 20100922
  Transmission Date: 20110411
  Serious: Yes (Death, Hospitalization)
  Sender: FDA-Public Use
  Company Number: A0867927A

PATIENT
  Age: 60 Year
  Sex: Female
  Weight: 60 kg

DRUGS (5)
  1. ARZERRA [Suspect]
     Dosage: 300MG UNKNOWN
     Route: 042
     Dates: start: 20100511
  2. DIPHENHYDRAMINE [Concomitant]
  3. TYLENOL [Concomitant]
  4. SOLU-MEDROL [Concomitant]
  5. ATIVAN [Concomitant]

REACTIONS (2)
  - NEUTROPENIA [None]
  - PYREXIA [None]
